FAERS Safety Report 8762533 (Version 1)
Quarter: 2012Q4

REPORT INFORMATION
  Report Type: 
  Country: US (occurrence: US)
  Receive Date: 20120829
  Receipt Date: 20120829
  Transmission Date: 20130627
  Serious: No
  Sender: FDA-Public Use
  Company Number: US-PFIZER INC-2012208763

PATIENT
  Age: 60 Year
  Sex: Male
  Weight: 90.7 kg

DRUGS (8)
  1. VIAGRA [Suspect]
     Indication: ERECTILE DYSFUNCTION
     Dosage: 100 mg, as needed
     Route: 048
     Dates: start: 20120720
  2. PLAVIX [Concomitant]
     Dosage: UNK
  3. ASPIRIN [Concomitant]
     Dosage: UNK
  4. TOPROL XL [Concomitant]
     Indication: VENTRICULAR EXTRASYSTOLES
     Dosage: 25 mg, UNK
  5. TOPROL XL [Concomitant]
     Indication: HYPERTENSION
  6. DEXALINT [Concomitant]
     Dosage: UNK
  7. MULTIVITAMINS [Concomitant]
     Dosage: UNK
  8. CRESTOR [Concomitant]
     Indication: BLOOD CHOLESTEROL INCREASED
     Dosage: UNK

REACTIONS (1)
  - Drug effect incomplete [Unknown]
